FAERS Safety Report 11375094 (Version 1)
Quarter: 2015Q3

REPORT INFORMATION
  Report Type: Spontaneous
  Country: TW (occurrence: TW)
  Receive Date: 20150813
  Receipt Date: 20150813
  Transmission Date: 20151125
  Serious: Yes (Other)
  Sender: FDA-Public Use
  Company Number: TW-PERRIGO-15TW007938

PATIENT
  Age: 38 Year
  Sex: Male

DRUGS (3)
  1. GRISEOFULVIN RX 25 MG/ML USP 6K8 [Suspect]
     Active Substance: GRISEOFULVIN
     Indication: ONYCHOMYCOSIS
     Dosage: 500 MG, QD
     Route: 065
  2. DISULFIRAM. [Suspect]
     Active Substance: DISULFIRAM
     Indication: ALCOHOL DETOXIFICATION
     Dosage: 200 MG, QD
     Route: 065
  3. ESCITALOPRAM [Concomitant]
     Active Substance: ESCITALOPRAM OXALATE
     Indication: DEPRESSION
     Dosage: 10 MG, QD
     Route: 065

REACTIONS (8)
  - Drug interaction [Recovered/Resolved]
  - Disorientation [Recovered/Resolved]
  - Abnormal behaviour [Recovered/Resolved]
  - Agitation [Recovered/Resolved]
  - Disturbance in attention [Recovered/Resolved]
  - Delirium [Recovered/Resolved]
  - Incoherent [Recovered/Resolved]
  - Hallucinations, mixed [Recovered/Resolved]
